FAERS Safety Report 24005018 (Version 1)
Quarter: 2024Q2

REPORT INFORMATION
  Report Type: Spontaneous
  Country: US (occurrence: US)
  Receive Date: 20240624
  Receipt Date: 20240624
  Transmission Date: 20240716
  Serious: Yes (Death, Life-Threatening, Hospitalization)
  Sender: FDA-Public Use
  Company Number: US-AMGEN-USASP2024121262

PATIENT

DRUGS (1)
  1. PREDNISONE [Suspect]
     Active Substance: PREDNISONE
     Indication: Immunosuppression
     Dosage: UNK UNK, QD, MORE THAN 20 MG/DAY DOSE EQUIVALENTS
     Route: 065

REACTIONS (13)
  - Death [Fatal]
  - COVID-19 [Unknown]
  - Fibrin D dimer increased [Unknown]
  - Blood fibrinogen abnormal [Unknown]
  - Troponin abnormal [Unknown]
  - C-reactive protein abnormal [Unknown]
  - Blood lactate dehydrogenase abnormal [Unknown]
  - Platelet count decreased [Unknown]
  - Platelet count increased [Unknown]
  - Lymphocyte count decreased [Unknown]
  - Lymphocyte count increased [Unknown]
  - Neutrophil count decreased [Unknown]
  - Neutrophil count increased [Unknown]
